FAERS Safety Report 24145553 (Version 1)
Quarter: 2024Q3

REPORT INFORMATION
  Report Type: Spontaneous
  Country: HK (occurrence: HK)
  Receive Date: 20240729
  Receipt Date: 20240729
  Transmission Date: 20241016
  Serious: Yes (Death)
  Sender: CHEPLAPHARM
  Company Number: HK-ROCHE-10000025292

PATIENT
  Age: 43 Year
  Sex: Male

DRUGS (15)
  1. CAPECITABINE [Suspect]
     Active Substance: CAPECITABINE
     Indication: Hepatic cancer
  2. SORAFENIB [Suspect]
     Active Substance: SORAFENIB
     Indication: Hepatic cancer
  3. OXALIPLATIN [Suspect]
     Active Substance: OXALIPLATIN
     Indication: Hepatic cancer
  4. AMILORIDE [Concomitant]
     Active Substance: AMILORIDE
  5. SOMATOSTATIN [Concomitant]
     Active Substance: SOMATOSTATIN
  6. ENTECAVIR [Concomitant]
     Active Substance: ENTECAVIR
  7. VITAMIN B6 [Concomitant]
     Active Substance: PYRIDOXINE HYDROCHLORIDE
  8. FERROUS SULFATE [Concomitant]
     Active Substance: FERROUS SULFATE
  9. CHLORHEXIDINE GLUCONATE [Concomitant]
     Active Substance: CHLORHEXIDINE GLUCONATE
  10. MEXOLON [Concomitant]
  11. INDERAL [Concomitant]
     Active Substance: PROPRANOLOL HYDROCHLORIDE
  12. LASIX [Concomitant]
     Active Substance: FUROSEMIDE
  13. ACETAMINOPHEN [Concomitant]
     Active Substance: ACETAMINOPHEN
  14. DEXAMETHASONE [Concomitant]
     Active Substance: DEXAMETHASONE
  15. LOPERAMIDE [Concomitant]
     Active Substance: LOPERAMIDE

REACTIONS (8)
  - Rectal haemorrhage [Fatal]
  - Abdominal distension [Fatal]
  - Haemorrhage intracranial [Fatal]
  - Oesophageal varices haemorrhage [Fatal]
  - General physical health deterioration [Fatal]
  - Hepatic function abnormal [Fatal]
  - Pyrexia [Fatal]
  - Off label use [Fatal]

NARRATIVE: CASE EVENT DATE: 20090211
